FAERS Safety Report 8036715-6 (Version None)
Quarter: 2012Q1

REPORT INFORMATION
  Report Type: 
  Country: None (occurrence: None)
  Receive Date: 20120106
  Receipt Date: 20111219
  Transmission Date: 20120608
  Serious: Yes (Other)
  Sender: FDA-Public Use
  Company Number: EUS-2011-00778

PATIENT
  Age: 14 Year
  Sex: Male

DRUGS (4)
  1. VUBCRUSTUBE [Concomitant]
  2. IDARUBICIN HCL [Concomitant]
  3. ASPARAGINASE (UNSPECIFIED) 9ASPARAGINASE) [Suspect]
     Indication: ACUTE LYMPHOCYTIC LEUKAEMIA
  4. PREDNISOLONE [Concomitant]

REACTIONS (6)
  - VARICELLA [None]
  - HEPATITIS FULMINANT [None]
  - ECCHYMOSIS [None]
  - MULTI-ORGAN FAILURE [None]
  - MYOCARDITIS [None]
  - DISSEMINATED INTRAVASCULAR COAGULATION [None]
